FAERS Safety Report 9824763 (Version 4)
Quarter: 2014Q2

REPORT INFORMATION
  Report Type: Report from Study
  Country: JP (occurrence: JP)
  Receive Date: 20140117
  Receipt Date: 20140409
  Transmission Date: 20141212
  Serious: Yes (Death, Other)
  Sender: FDA-Public Use
  Company Number: JP-ROCHE-1106215

PATIENT
  Sex: 0

DRUGS (2)
  1. TOCILIZUMAB [Suspect]
     Indication: RHEUMATOID ARTHRITIS
     Route: 042
  2. METHOTREXATE [Concomitant]

REACTIONS (13)
  - Infection [Fatal]
  - Cardiac failure [Unknown]
  - Lymphoma [Unknown]
  - Neoplasm malignant [Unknown]
  - Anaphylactic reaction [Unknown]
  - Myocardial ischaemia [Unknown]
  - Gastrointestinal perforation [Unknown]
  - Interstitial lung disease [Unknown]
  - Respiratory tract infection [Unknown]
  - Hepatobiliary disease [Unknown]
  - Blood cholesterol increased [Unknown]
  - Blood triglycerides increased [Unknown]
  - Infusion related reaction [Unknown]
